FAERS Safety Report 9284323 (Version 2)
Quarter: 2013Q2

REPORT INFORMATION
  Report Type: Report from Study
  Country: US (occurrence: US)
  Receive Date: 20130510
  Receipt Date: 20130517
  Transmission Date: 20140414
  Serious: Yes (Life-Threatening, Hospitalization, Other)
  Sender: FDA-Public Use
  Company Number: US-ACTELION-A-US2013-82825

PATIENT
  Age: 76 Year
  Sex: Female

DRUGS (2)
  1. TRACLEER [Suspect]
     Indication: PULMONARY ARTERIAL HYPERTENSION
     Dosage: UNK
     Route: 048
  2. COUMADIN [Concomitant]

REACTIONS (5)
  - Pituitary haemorrhage [Recovered/Resolved]
  - Pituitary tumour benign [Recovered/Resolved]
  - Brain operation [Recovered/Resolved]
  - Hydrocephalus [Recovered/Resolved]
  - Cerebral haemorrhage [Recovered/Resolved]
